FAERS Safety Report 7231073-9 (Version None)
Quarter: 2011Q1

REPORT INFORMATION
  Report Type: 
  Country: None (occurrence: None)
  Receive Date: 20110118
  Receipt Date: 20110111
  Transmission Date: 20110831
  Serious: Yes (Hospitalization)
  Sender: FDA-Public Use
  Company Number: FR-ROCHE-752804

PATIENT
  Sex: Male

DRUGS (2)
  1. VALIUM [Suspect]
     Route: 048
  2. VALIUM [Suspect]
     Dosage: VOLUNTARY DRUG INTOXICATION
     Route: 048
     Dates: start: 20101210, end: 20101210

REACTIONS (1)
  - POISONING [None]
